FAERS Safety Report 19031145 (Version 1)
Quarter: 2021Q1

REPORT INFORMATION
  Report Type: Spontaneous
  Country: US (occurrence: US)
  Receive Date: 20210319
  Receipt Date: 20210319
  Transmission Date: 20210420
  Serious: Yes (Hospitalization)
  Sender: FDA-Public Use
  Company Number: None

PATIENT
  Sex: Female
  Weight: 83 kg

DRUGS (1)
  1. TEMOZOLOMIDE. [Suspect]
     Active Substance: TEMOZOLOMIDE
     Dates: end: 20210216

REACTIONS (19)
  - Rash erythematous [None]
  - Lung disorder [None]
  - Skin exfoliation [None]
  - Cough [None]
  - Infection [None]
  - Sepsis [None]
  - Skin fissures [None]
  - Neoplasm malignant [None]
  - Therapy interrupted [None]
  - Dry skin [None]
  - QRS axis abnormal [None]
  - Rash maculo-papular [None]
  - Dyspnoea [None]
  - Lymphadenopathy [None]
  - Thrombosis [None]
  - Rash [None]
  - White blood cell count increased [None]
  - Sinus tachycardia [None]
  - Drug reaction with eosinophilia and systemic symptoms [None]

NARRATIVE: CASE EVENT DATE: 20210315
